FAERS Safety Report 7747229 (Version 5)
Quarter: 2015Q3

REPORT INFORMATION
  Report Type: Spontaneous
  Country: US (occurrence: US)
  Receive Date: 20110104
  Receipt Date: 20150716
  Transmission Date: 20151125
  Serious: Yes (Hospitalization, Other)
  Sender: FDA-Public Use
  Company Number: US-BAYER-2010-009356

PATIENT
  Age: 24 Year
  Sex: Female
  Weight: 129.25 kg

DRUGS (16)
  1. OCELLA [Suspect]
     Active Substance: DROSPIRENONE\ETHINYL ESTRADIOL
     Dosage: UNK
     Dates: start: 200904, end: 200909
  2. MOTRIN [Concomitant]
     Active Substance: IBUPROFEN
  3. PROAIR HFA [Concomitant]
     Active Substance: ALBUTEROL SULFATE
  4. VITAMIN B12 [Concomitant]
     Active Substance: CYANOCOBALAMIN
     Dosage: 1500 MCG
  5. MAGNESIUM [Concomitant]
     Active Substance: MAGNESIUM
  6. VOSOL [Concomitant]
     Active Substance: ACETIC ACID
  7. LOVENOX [Concomitant]
     Active Substance: ENOXAPARIN SODIUM
  8. NEXIUM [Concomitant]
     Active Substance: ESOMEPRAZOLE MAGNESIUM
     Dosage: UNK UNK, QD
     Route: 048
  9. XOPENEX [Concomitant]
     Active Substance: LEVALBUTEROL HYDROCHLORIDE
     Indication: ASTHMA
     Dosage: UNK UNK, PRN
  10. OCELLA [Suspect]
     Active Substance: DROSPIRENONE\ETHINYL ESTRADIOL
     Dosage: UNK
  11. ALBUTEROL. [Concomitant]
     Active Substance: ALBUTEROL
  12. TRIAZ [Concomitant]
     Active Substance: BENZOYL PEROXIDE
  13. ANAPROX DS [Concomitant]
     Active Substance: NAPROXEN SODIUM
  14. EFFEXOR [Concomitant]
     Active Substance: VENLAFAXINE HYDROCHLORIDE
     Dosage: 75 MG, HS
  15. ASMANEX [Concomitant]
     Active Substance: MOMETASONE FUROATE
  16. SOMA [Concomitant]
     Active Substance: CARISOPRODOL

REACTIONS (9)
  - Deep vein thrombosis [Recovered/Resolved]
  - Muscle spasms [Recovered/Resolved]
  - Thrombosis [Recovered/Resolved]
  - Pain in extremity [Recovered/Resolved]
  - Peripheral swelling [Recovered/Resolved]
  - Anxiety [Recovered/Resolved]
  - Depression [None]
  - Pain [Recovered/Resolved]
  - Fear [Recovered/Resolved]

NARRATIVE: CASE EVENT DATE: 200909
